FAERS Safety Report 18488178 (Version 1)
Quarter: 2020Q4

REPORT INFORMATION
  Report Type: Not Available
  Country: US (occurrence: US)
  Receive Date: 20201110
  Receipt Date: 20201110
  Transmission Date: 20210114
  Serious: No
  Sender: FDA-Public Use
  Company Number: US-NEUROCRINE BIOSCIENCES INC.-2020NBI04085

PATIENT
  Age: 68 Year
  Sex: Male

DRUGS (3)
  1. INGREZZA [Suspect]
     Active Substance: VALBENAZINE
     Indication: TARDIVE DYSKINESIA
     Route: 048
     Dates: start: 20170814, end: 20170820
  2. INGREZZA [Suspect]
     Active Substance: VALBENAZINE
     Dosage: INGREZZA DOSE WAS DECREASED (DOSE UNSPECIFIED)
  3. INGREZZA [Suspect]
     Active Substance: VALBENAZINE
     Route: 048
     Dates: start: 20170821

REACTIONS (1)
  - Tremor [Recovering/Resolving]
